FAERS Safety Report 13442509 (Version 3)
Quarter: 2017Q2

REPORT INFORMATION
  Report Type: Report from Study
  Country: CA (occurrence: CA)
  Receive Date: 20170414
  Receipt Date: 20170606
  Transmission Date: 20170830
  Serious: Yes (Hospitalization, Other)
  Sender: FDA-Public Use
  Company Number: CA-ROCHE-1920144

PATIENT
  Sex: Female

DRUGS (3)
  1. CRIZOTINIB [Concomitant]
     Active Substance: CRIZOTINIB
  2. ALECENSARO [Suspect]
     Active Substance: ALECTINIB
     Indication: NON-SMALL CELL LUNG CANCER
     Route: 048
     Dates: start: 20161229, end: 2017
  3. ALECENSARO [Suspect]
     Active Substance: ALECTINIB
     Route: 048

REACTIONS (4)
  - Internal haemorrhage [Recovering/Resolving]
  - Pulmonary oedema [Not Recovered/Not Resolved]
  - Nervous system disorder [Unknown]
  - Drug ineffective [Unknown]
